FAERS Safety Report 4551734-X (Version None)
Quarter: 2005Q1

REPORT INFORMATION
  Report Type: 
  Country: None (occurrence: None)
  Receive Date: 20050113
  Receipt Date: 20021210
  Transmission Date: 20050727
  Serious: Yes (Hospitalization)
  Sender: FDA-Public Use
  Company Number: US-GLAXOSMITHKLINE-A0388857A

PATIENT
  Age: 48 Year
  Sex: Female

DRUGS (17)
  1. LOTRONEX [Suspect]
     Indication: IRRITABLE BOWEL SYNDROME
     Dosage: 1MG TWICE PER DAY
     Route: 048
     Dates: start: 20000316, end: 20001101
  2. OXYCONTIN [Concomitant]
     Dosage: 20MG TWICE PER DAY
  3. LORCET-HD [Concomitant]
  4. CLONIDINE [Concomitant]
  5. ACCUPRIL [Concomitant]
  6. HYDROCHLOROTHIAZIDE [Concomitant]
  7. POTASSIUM [Concomitant]
  8. PREMARIN [Concomitant]
     Dates: start: 20000824
  9. CELEXA [Concomitant]
  10. NITROGLYCERIN [Concomitant]
  11. XANAX [Concomitant]
  12. TRICOR [Concomitant]
  13. SOMA [Concomitant]
  14. PREVACID [Concomitant]
  15. ATENOLOL [Concomitant]
  16. ALDACTONE [Concomitant]
  17. CENESTIN [Concomitant]
     Dates: start: 20000825

REACTIONS (9)
  - ACUTE RESPIRATORY DISTRESS SYNDROME [None]
  - ASTHENIA [None]
  - CONSTIPATION [None]
  - FAECALOMA [None]
  - FATIGUE [None]
  - NAUSEA [None]
  - PAINFUL DEFAECATION [None]
  - PNEUMONIA [None]
  - RESPIRATORY FAILURE [None]
